FAERS Safety Report 18443126 (Version 1)
Quarter: 2020Q4

REPORT INFORMATION
  Report Type: Spontaneous
  Country: US (occurrence: US)
  Receive Date: 20201029
  Receipt Date: 20201029
  Transmission Date: 20210114
  Serious: No
  Sender: FDA-Public Use
  Company Number: US-BAUSCH-BL-2020-029687

PATIENT
  Age: 72 Year
  Sex: Female

DRUGS (2)
  1. BACITRACIN ZINC AND POLYMYXIN B SULFATE [Suspect]
     Active Substance: BACITRACIN ZINC\POLYMYXIN B SULFATE
     Indication: EYELID INJURY
     Route: 047
     Dates: start: 202009
  2. SOOTHE XP [Suspect]
     Active Substance: LIGHT MINERAL OIL\MINERAL OIL
     Indication: DRY EYE
     Dosage: 1 DROP IN THE AFFECTED EYE (LEFT EYE) EVERY 2 HOURS AS NEEDED
     Route: 047
     Dates: start: 2020

REACTIONS (6)
  - Eye irritation [Recovering/Resolving]
  - Pruritus [Recovering/Resolving]
  - Foreign body sensation in eyes [Not Recovered/Not Resolved]
  - Lacrimation increased [Recovering/Resolving]
  - Erythema [Not Recovered/Not Resolved]
  - Eye discharge [Not Recovered/Not Resolved]

NARRATIVE: CASE EVENT DATE: 2020
